FAERS Safety Report 8935604 (Version 1)
Quarter: 2012Q4

REPORT INFORMATION
  Report Type: 
  Country: FR (occurrence: FR)
  Receive Date: 20121130
  Receipt Date: 20121130
  Transmission Date: 20130627
  Serious: Yes (Life-Threatening, Hospitalization, Other)
  Sender: FDA-Public Use
  Company Number: PHHY2012FR109204

PATIENT
  Age: 93 Year
  Sex: Female

DRUGS (12)
  1. COTAREG [Suspect]
     Indication: CARDIAC DISORDER
     Dosage: 1 DF (160/25mg), UNK
     Route: 048
     Dates: start: 20120822
  2. ALDACTONE [Interacting]
     Indication: CARDIAC DISORDER
     Dosage: 25 mg, daily
     Route: 048
     Dates: start: 20120822
  3. DETENSIEL [Concomitant]
     Indication: CARDIAC DISORDER
  4. EUPRESSYL [Concomitant]
     Indication: CARDIAC DISORDER
  5. AMLOR [Concomitant]
     Indication: CARDIAC DISORDER
     Dosage: 5 mg, daily
  6. AMLOR [Concomitant]
     Dosage: 10 mg, daily
     Dates: start: 201208
  7. STRESAM [Concomitant]
  8. DOGMATYL [Concomitant]
  9. ESBERIVEN FORT [Concomitant]
  10. CALTRATE [Concomitant]
  11. SERESTA [Concomitant]
  12. TIMABAK [Concomitant]

REACTIONS (2)
  - Hyponatraemia [Recovered/Resolved]
  - Drug interaction [Unknown]
